FAERS Safety Report 6552594-8 (Version None)
Quarter: 2010Q1

REPORT INFORMATION
  Report Type: 
  Country: None (occurrence: None)
  Receive Date: 20100121
  Receipt Date: 20100113
  Transmission Date: 20100710
  Serious: Yes (Hospitalization)
  Sender: FDA-Public Use
  Company Number: ALL1-2009-03825

PATIENT
  Age: 46 Year
  Sex: Female
  Weight: 158.7 kg

DRUGS (5)
  1. ADDERALL XR(AMPHETAMINE ASPARTATE, AMPHETAMINE SULFATE, DEXTROAMPHETAM [Suspect]
     Indication: ATTENTION DEFICIT/HYPERACTIVITY DISORDER
     Dosage: 20 MG, 2X/DAY:BID, ORAL; 30 MG, 2X/DAY:BID (30MG IN AM  AND 30MG IN PM)
     Route: 048
  2. ADDERALL XR(AMPHETAMINE ASPARTATE, AMPHETAMINE SULFATE, DEXTROAMPHETAM [Suspect]
     Indication: WEIGHT CONTROL
     Dosage: 20 MG, 2X/DAY:BID, ORAL; 30 MG, 2X/DAY:BID (30MG IN AM  AND 30MG IN PM)
     Route: 048
  3. AMBIEN [Concomitant]
  4. ALPRAZOLAM [Concomitant]
  5. CELEBREX [Concomitant]

REACTIONS (3)
  - INAPPROPRIATE SCHEDULE OF DRUG ADMINISTRATION [None]
  - JOINT INJURY [None]
  - OVERDOSE [None]
